FAERS Safety Report 9735765 (Version 1)
Quarter: 2013Q4

REPORT INFORMATION
  Report Type: Spontaneous
  Country: US (occurrence: US)
  Receive Date: 20131206
  Receipt Date: 20131206
  Transmission Date: 20140711
  Serious: No
  Sender: FDA-Public Use
  Company Number: US-GILEAD-2009-0023055

PATIENT
  Sex: Female
  Weight: 65.77 kg

DRUGS (17)
  1. LETAIRIS [Suspect]
     Indication: PULMONARY ARTERIAL HYPERTENSION
     Route: 048
     Dates: start: 20090526
  2. LASIX [Concomitant]
  3. ALBUTEROL [Concomitant]
  4. ADVAIR [Concomitant]
  5. SPIRIVA [Concomitant]
  6. CARAFATE [Concomitant]
  7. LEVOTHYROXINE [Concomitant]
  8. ACCUPRIL [Concomitant]
  9. PLAVIX [Concomitant]
  10. BONIVA [Concomitant]
  11. TRAZODONE [Concomitant]
  12. PRILOSEC [Concomitant]
  13. TYLENOL PM [Concomitant]
  14. ASPIRIN [Concomitant]
  15. CALCIUM +D [Concomitant]
  16. FERROUS SULFATE [Concomitant]
  17. MULTIVITAMIN [Concomitant]

REACTIONS (2)
  - Rhinorrhoea [Unknown]
  - Nasal congestion [Unknown]
